FAERS Safety Report 8804182 (Version 3)
Quarter: 2015Q3

REPORT INFORMATION
  Report Type: Spontaneous
  Country: US (occurrence: US)
  Receive Date: 20120924
  Receipt Date: 20150701
  Transmission Date: 20151125
  Serious: Yes (Death)
  Sender: FDA-Public Use
  Company Number: US-BAYER-2012-098256

PATIENT
  Age: 42 Year
  Sex: Female

DRUGS (11)
  1. GUAIFENEX [GUAIFENESIN] [Concomitant]
  2. CYCLOBENZAPRINE [Concomitant]
     Active Substance: CYCLOBENZAPRINE
  3. ALLEGRA [Concomitant]
     Active Substance: FEXOFENADINE HYDROCHLORIDE
  4. YAZ [Suspect]
     Active Substance: DROSPIRENONE\ETHINYL ESTRADIOL
     Indication: CONTRACEPTION
  5. FLUTICASONE PROPIONATE. [Concomitant]
     Active Substance: FLUTICASONE PROPIONATE
     Dosage: UNK
     Dates: start: 20080314
  6. OXYMETAZOLINE [Concomitant]
     Active Substance: OXYMETAZOLINE
  7. TRAMADOL. [Concomitant]
     Active Substance: TRAMADOL
  8. YASMIN [Suspect]
     Active Substance: DROSPIRENONE\ETHINYL ESTRADIOL
  9. FEXOFENADINE HYDROCHLORIDE. [Concomitant]
     Active Substance: FEXOFENADINE HYDROCHLORIDE
     Dosage: UNK
     Dates: start: 20080314
  10. ATENOLOL. [Concomitant]
     Active Substance: ATENOLOL
  11. FLUOCINONIDE. [Concomitant]
     Active Substance: FLUOCINONIDE

REACTIONS (2)
  - Pulmonary embolism [Fatal]
  - Injury [None]

NARRATIVE: CASE EVENT DATE: 20080404
